FAERS Safety Report 18933403 (Version 2)
Quarter: 2021Q3

REPORT INFORMATION
  Report Type: Spontaneous
  Country: US (occurrence: US)
  Receive Date: 20210224
  Receipt Date: 20210817
  Transmission Date: 20211014
  Serious: Yes (Other)
  Sender: FDA-Public Use
  Company Number: US-GILEAD-2021-0517975

PATIENT
  Sex: Male
  Weight: 77.1 kg

DRUGS (58)
  1. COMPLERA [Suspect]
     Active Substance: EMTRICITABINE\RILPIVIRINE HYDROCHLORIDE\TENOFOVIR DISOPROXIL FUMARATE
     Indication: HIV INFECTION
     Dosage: UNK
     Route: 048
     Dates: start: 2006
  2. EX?LAX [PHENOLPHTHALEIN] [Concomitant]
     Active Substance: PHENOLPHTHALEIN
  3. GAVILYTE ? C [Concomitant]
     Active Substance: POLYETHYLENE GLYCOL 3350\POTASSIUM CHLORIDE\SODIUM BICARBONATE\SODIUM CHLORIDE\SODIUM SULFATE
  4. LIDOCAINE. [Concomitant]
     Active Substance: LIDOCAINE
  5. METHYLPREDNISOLONE. [Concomitant]
     Active Substance: METHYLPREDNISOLONE
  6. PREDNISONE. [Concomitant]
     Active Substance: PREDNISONE
  7. GABAPENTIN. [Concomitant]
     Active Substance: GABAPENTIN
  8. ATRIPLA [Suspect]
     Active Substance: EFAVIRENZ\EMTRICITABINE\TENOFOVIR DISOPROXIL FUMARATE
     Dosage: UNK
     Route: 048
     Dates: start: 2011, end: 2017
  9. BIKTARVY [Concomitant]
     Active Substance: BICTEGRAVIR SODIUM\EMTRICITABINE\TENOFOVIR ALAFENAMIDE FUMARATE
  10. DIAZEPAM. [Concomitant]
     Active Substance: DIAZEPAM
  11. MAGNESIUM OXIDE. [Concomitant]
     Active Substance: MAGNESIUM OXIDE
  12. NAPROXEN. [Concomitant]
     Active Substance: NAPROXEN
  13. SUCRALFATE. [Concomitant]
     Active Substance: SUCRALFATE
  14. TAMSULOSIN [Concomitant]
     Active Substance: TAMSULOSIN
  15. UBRELVY [Concomitant]
     Active Substance: UBROGEPANT
  16. VITAMIN D2 [Concomitant]
     Active Substance: ERGOCALCIFEROL
  17. CYMBALTA [Concomitant]
     Active Substance: DULOXETINE HYDROCHLORIDE
  18. ATRIPLA [Suspect]
     Active Substance: EFAVIRENZ\EMTRICITABINE\TENOFOVIR DISOPROXIL FUMARATE
     Indication: HIV INFECTION
     Dosage: UNK
     Route: 048
     Dates: start: 2006
  19. ATORVASTATIN [Concomitant]
     Active Substance: ATORVASTATIN
  20. CIPROFLOXACIN. [Concomitant]
     Active Substance: CIPROFLOXACIN
  21. ONDANSETRON [Concomitant]
     Active Substance: ONDANSETRON
  22. OXYCODONE [Concomitant]
     Active Substance: OXYCODONE
  23. POLYETHYLENE GLYCOL 400 [Concomitant]
     Active Substance: POLYETHYLENE GLYCOL 400
  24. VITAMIN B2 [Concomitant]
     Active Substance: RIBOFLAVIN
  25. FOLIC ACID. [Concomitant]
     Active Substance: FOLIC ACID
  26. CLONAZEPAM. [Concomitant]
     Active Substance: CLONAZEPAM
  27. NEXIUM I.V. [Concomitant]
     Active Substance: ESOMEPRAZOLE SODIUM
  28. PANTOPRAZOLE [Concomitant]
     Active Substance: PANTOPRAZOLE
  29. AMITRIPTYLINE [Concomitant]
     Active Substance: AMITRIPTYLINE
  30. ASPIRIN [ACETYLSALICYLIC ACID] [Concomitant]
     Active Substance: ASPIRIN
  31. BELBUCA [Concomitant]
     Active Substance: BUPRENORPHINE HYDROCHLORIDE
  32. CITALOPRAM [Concomitant]
     Active Substance: CITALOPRAM HYDROBROMIDE
  33. SERTRALINE [Concomitant]
     Active Substance: SERTRALINE HYDROCHLORIDE
  34. SULFAMETHOXAZOLE [Concomitant]
     Active Substance: SULFAMETHOXAZOLE
  35. SUMATRIPTAN. [Concomitant]
     Active Substance: SUMATRIPTAN
  36. TRIAMCINOLONE [Concomitant]
     Active Substance: TRIAMCINOLONE
  37. TRIUMEQ [Concomitant]
     Active Substance: ABACAVIR SULFATE\DOLUTEGRAVIR SODIUM\LAMIVUDINE
  38. BUSPIRONE [Concomitant]
     Active Substance: BUSPIRONE HYDROCHLORIDE
  39. BUTALBITAL [Concomitant]
     Active Substance: BUTALBITAL
  40. CYCLOBENZAPRINE. [Concomitant]
     Active Substance: CYCLOBENZAPRINE
  41. ESOMEPRAZOLE. [Concomitant]
     Active Substance: ESOMEPRAZOLE MAGNESIUM
  42. OMEPRAZOLE. [Concomitant]
     Active Substance: OMEPRAZOLE
  43. TRAMADOL. [Concomitant]
     Active Substance: TRAMADOL
  44. VITAFUSION MULTIVITES [Concomitant]
  45. LYRICA [Concomitant]
     Active Substance: PREGABALIN
  46. COMPLERA [Suspect]
     Active Substance: EMTRICITABINE\RILPIVIRINE HYDROCHLORIDE\TENOFOVIR DISOPROXIL FUMARATE
     Dosage: UNK
     Route: 048
     Dates: start: 2017, end: 202105
  47. AFLURIA NOS [Concomitant]
     Active Substance: INFLUENZA VIRUS VACCINE TRIVALENT TYPE A+B AFLURIA
  48. AIMOVIG [Concomitant]
     Active Substance: ERENUMAB-AOOE
  49. DICLOFENAC [Concomitant]
     Active Substance: DICLOFENAC
  50. FAMOTIDINE. [Concomitant]
     Active Substance: FAMOTIDINE
  51. FLUOXETINE [Concomitant]
     Active Substance: FLUOXETINE HYDROCHLORIDE
  52. HYDROCODONE [Concomitant]
     Active Substance: HYDROCODONE
  53. CEPHALEXIN [CEFALEXIN] [Concomitant]
     Active Substance: CEPHALEXIN
  54. HYDROXYCHLOROQUINE [Concomitant]
     Active Substance: HYDROXYCHLOROQUINE
  55. SILDENAFIL. [Concomitant]
     Active Substance: SILDENAFIL
  56. TIZANIDINE. [Concomitant]
     Active Substance: TIZANIDINE
  57. TOPIRAMATE. [Concomitant]
     Active Substance: TOPIRAMATE
  58. ZOLOFT [Concomitant]
     Active Substance: SERTRALINE HYDROCHLORIDE

REACTIONS (15)
  - Emotional distress [Not Recovered/Not Resolved]
  - Dysuria [Unknown]
  - Intervertebral disc degeneration [Not Recovered/Not Resolved]
  - Mobility decreased [Not Recovered/Not Resolved]
  - Quality of life decreased [Not Recovered/Not Resolved]
  - Skeletal injury [Unknown]
  - Anhedonia [Not Recovered/Not Resolved]
  - Blood urine present [Unknown]
  - Osteopenia [Not Recovered/Not Resolved]
  - Degenerative bone disease [Unknown]
  - Post-traumatic stress disorder [Not Recovered/Not Resolved]
  - Chronic kidney disease [Not Recovered/Not Resolved]
  - Pain [Not Recovered/Not Resolved]
  - Urinary tract infection [Unknown]
  - Anxiety [Not Recovered/Not Resolved]

NARRATIVE: CASE EVENT DATE: 2010
